FAERS Safety Report 15365423 (Version 1)
Quarter: 2018Q3

REPORT INFORMATION
  Report Type: Spontaneous
  Country: US (occurrence: US)
  Receive Date: 20180831
  Receipt Date: 20180831
  Transmission Date: 20181010
  Serious: Yes (Hospitalization)
  Sender: FDA-Public Use
  Company Number: None

PATIENT
  Age: 56 Year
  Sex: Female

DRUGS (1)
  1. COPAXONE [Suspect]
     Active Substance: GLATIRAMER ACETATE
     Route: 058
     Dates: start: 20150809

REACTIONS (6)
  - Hyperhidrosis [None]
  - Nausea [None]
  - Retching [None]
  - Dyspnoea [None]
  - Blood pressure measurement [None]
  - Tremor [None]

NARRATIVE: CASE EVENT DATE: 20180801
